FAERS Safety Report 14712806 (Version 1)
Quarter: 2018Q2

REPORT INFORMATION
  Report Type: Report from Study
  Country: None (occurrence: US)
  Receive Date: 20180404
  Receipt Date: 20180404
  Transmission Date: 20180711
  Serious: Yes (Other)
  Sender: FDA-Public Use
  Company Number: US-ABBVIE-17K-163-2088545-00

PATIENT
  Sex: Male

DRUGS (2)
  1. HUMIRA [Suspect]
     Active Substance: ADALIMUMAB
     Indication: RHEUMATOID ARTHRITIS
     Route: 058
     Dates: start: 20170717, end: 2017
  2. HUMIRA [Suspect]
     Active Substance: ADALIMUMAB
     Route: 058

REACTIONS (5)
  - Arthralgia [Unknown]
  - Fatigue [Not Recovered/Not Resolved]
  - Joint stiffness [Unknown]
  - Joint swelling [Unknown]
  - Plantar fasciitis [Unknown]

NARRATIVE: CASE EVENT DATE: 2017
